FAERS Safety Report 7042908-7 (Version None)
Quarter: 2010Q4

REPORT INFORMATION
  Report Type: 
  Country: None (occurrence: None)
  Receive Date: 20101013
  Receipt Date: 20100204
  Transmission Date: 20110411
  Serious: No
  Sender: FDA-Public Use
  Company Number: US-ASTRAZENECA-2010SE05121

PATIENT
  Age: 67 Year
  Sex: Female
  Weight: 113.4 kg

DRUGS (10)
  1. SYMBICORT [Suspect]
     Indication: ASTHMA
     Dosage: 160/4.5 UG
     Route: 055
     Dates: start: 20080101
  2. HYDROCHLOROTHIAZIDE [Concomitant]
  3. CILOSTZOAL [Concomitant]
  4. DILTIAZEM [Concomitant]
  5. SINGULAIR [Concomitant]
  6. LEVOTHYROXINE [Concomitant]
  7. DIGOXIN [Concomitant]
  8. WARFARIN SODIUM [Concomitant]
  9. LISINOPRIL [Concomitant]
  10. VITAMINS AND MINERALS [Concomitant]

REACTIONS (1)
  - DRY EYE [None]
